FAERS Safety Report 6383933-9 (Version None)
Quarter: 2009Q3

REPORT INFORMATION
  Report Type: 
  Country: None (occurrence: None)
  Receive Date: 20090928
  Receipt Date: 20090915
  Transmission Date: 20100115
  Serious: Yes (Hospitalization)
  Sender: FDA-Public Use
  Company Number: 1000009036

PATIENT
  Age: 86 Year
  Sex: Female

DRUGS (3)
  1. CITALOPRAM HYDROBROMIDE [Suspect]
     Indication: MAJOR DEPRESSION
     Dosage: 30 MG (30 MG, 1 IN 1 D), ORAL
     Route: 048
     Dates: start: 20090101
  2. ARIXTRA [Suspect]
     Dosage: 2.5 MG (2.5 MG, 1 IN 1 D, SUBCUTANEOUS)
     Route: 058
     Dates: end: 20090720
  3. KARDEGIC [Suspect]
     Dosage: 75 MG (75 MG, 1 IN 1 D), ORAL
     Route: 048

REACTIONS (7)
  - BUNDLE BRANCH BLOCK LEFT [None]
  - CHONDROCALCINOSIS [None]
  - FALL [None]
  - HAEMORRHAGIC STROKE [None]
  - NORMOCHROMIC NORMOCYTIC ANAEMIA [None]
  - PATELLA FRACTURE [None]
  - SINUS ARRHYTHMIA [None]
